FAERS Safety Report 6714306-4 (Version None)
Quarter: 2010Q2

REPORT INFORMATION
  Report Type: 
  Country: None (occurrence: None)
  Receive Date: 20100506
  Receipt Date: 20100428
  Transmission Date: 20101027
  Serious: Yes (Death, Other)
  Sender: FDA-Public Use
  Company Number: GR-PFIZER INC-2010054678

PATIENT
  Age: 32 Year
  Sex: Female

DRUGS (9)
  1. DOXORUBICIN HCL [Suspect]
     Indication: ACUTE LEUKAEMIA
     Route: 042
  2. CYTARABINE [Suspect]
     Indication: ACUTE LEUKAEMIA
  3. CYCLOPHOSPHAMIDE [Suspect]
     Indication: ACUTE LEUKAEMIA
  4. MESNA [Suspect]
     Indication: ACUTE LEUKAEMIA
  5. METHOTREXATE [Suspect]
     Indication: ACUTE LEUKAEMIA
  6. VINCRISTINE [Suspect]
     Indication: ACUTE LEUKAEMIA
  7. DEXAMETHASONE [Suspect]
     Indication: ACUTE LEUKAEMIA
  8. FOLINIC ACID [Suspect]
     Indication: ACUTE LEUKAEMIA
  9. SODIUM BICARBONATE [Suspect]
     Indication: ACUTE LEUKAEMIA

REACTIONS (5)
  - CEREBRAL HAEMATOMA [None]
  - DEATH [None]
  - HEADACHE [None]
  - PYREXIA [None]
  - UTERINE ENLARGEMENT [None]
